FAERS Safety Report 7418557-5 (Version None)
Quarter: 2011Q2

REPORT INFORMATION
  Report Type: 
  Country: None (occurrence: None)
  Receive Date: 20110415
  Receipt Date: 20110405
  Transmission Date: 20111010
  Serious: Yes (Hospitalization)
  Sender: FDA-Public Use
  Company Number: PHHY2011US28035

PATIENT
  Sex: Male

DRUGS (1)
  1. EXJADE [Suspect]
     Indication: THALASSAEMIA
     Dosage: 1000 MG, UNK
     Route: 048

REACTIONS (3)
  - NAUSEA [None]
  - CARDIAC FAILURE CONGESTIVE [None]
  - ENDOCARDITIS BACTERIAL [None]
